FAERS Safety Report 10505124 (Version 1)
Quarter: 2014Q3

REPORT INFORMATION
  Report Type: Spontaneous
  Country: US (occurrence: None)
  Receive Date: 20140915
  Receipt Date: 20140915
  Transmission Date: 20150326
  Serious: Yes (Other)
  Sender: FDA-Public Use
  Company Number: PHEH2014US001146

PATIENT
  Age: 66 Year
  Sex: Male

DRUGS (6)
  1. DIOVAN HCT [Suspect]
     Active Substance: HYDROCHLOROTHIAZIDE\VALSARTAN
     Dosage: 1 DF, QD (VIALS 320 MG, HCTZ 25 MG)
  2. INSULIN (INSULIN) [Concomitant]
     Active Substance: INSULIN NOS
  3. DIOVAN [Suspect]
     Active Substance: VALSARTAN
  4. METFORMIN [Concomitant]
     Active Substance: METFORMIN HYDROCHLORIDE
  5. CALCIUM (CALCIUM) [Concomitant]
     Active Substance: CALCIUM
  6. MULTIVITAMIN/VITAMINS NOS (VITAMINS NOS) [Concomitant]

REACTIONS (1)
  - Thrombocytopenia [None]
